FAERS Safety Report 17308390 (Version 2)
Quarter: 2020Q1

REPORT INFORMATION
  Report Type: Spontaneous
  Country: US (occurrence: US)
  Receive Date: 20200123
  Receipt Date: 20200219
  Transmission Date: 20200409
  Serious: No
  Sender: FDA-Public Use
  Company Number: US-ASTRAZENECA-2020SE03621

PATIENT
  Age: 69 Year
  Sex: Male
  Weight: 89.4 kg

DRUGS (5)
  1. BYDUREON BCISE [Suspect]
     Active Substance: EXENATIDE
     Indication: GLYCOSYLATED HAEMOGLOBIN
     Route: 065
  2. METFORMIN [Concomitant]
     Active Substance: METFORMIN HYDROCHLORIDE
     Indication: DIABETES MELLITUS
  3. GLYBURIDE. [Concomitant]
     Active Substance: GLYBURIDE
     Indication: RENAL DISORDER
  4. INVOKANA [Concomitant]
     Active Substance: CANAGLIFLOZIN
     Indication: DIABETES MELLITUS
  5. GLYBURIDE. [Concomitant]
     Active Substance: GLYBURIDE
     Indication: DIABETES MELLITUS

REACTIONS (9)
  - Wrong technique in device usage process [Unknown]
  - Pain in extremity [Unknown]
  - Device issue [Unknown]
  - Device leakage [Unknown]
  - Glycosylated haemoglobin increased [Not Recovered/Not Resolved]
  - Intentional device misuse [Unknown]
  - Injection site mass [Unknown]
  - Weight decreased [Unknown]
  - Incorrect dose administered by device [Not Recovered/Not Resolved]

NARRATIVE: CASE EVENT DATE: 2019
